FAERS Safety Report 9583637 (Version 1)
Quarter: 2013Q4

REPORT INFORMATION
  Report Type: Spontaneous
  Country: US (occurrence: US)
  Receive Date: 20131002
  Receipt Date: 20131002
  Transmission Date: 20140711
  Serious: No
  Sender: FDA-Public Use
  Company Number: US-AMGEN-USASP2013048298

PATIENT
  Age: 64 Year
  Sex: Female
  Weight: 219 kg

DRUGS (7)
  1. ENBREL [Suspect]
     Indication: PRODUCT USED FOR UNKNOWN INDICATION
     Dosage: 50 MG, QWK
     Route: 058
  2. IBUPROFEN [Concomitant]
     Dosage: 200 MG, UNK
  3. ALBUTEROL                          /00139501/ [Concomitant]
     Dosage: 90 MUG, UNK
  4. ADVAIR [Concomitant]
     Dosage: 100/50 UNK, UNK
  5. HYDROCHLOROTH [Concomitant]
     Dosage: 12.5 MG, UNK
  6. DORZOLAMIDE [Concomitant]
     Dosage: 2 %, UNK
     Route: 047
  7. BRIMONIDINE [Concomitant]
     Dosage: 0.15 %, UNK

REACTIONS (1)
  - Influenza [Unknown]
